FAERS Safety Report 13853499 (Version 2)
Quarter: 2017Q4

REPORT INFORMATION
  Report Type: Spontaneous
  Country: US (occurrence: US)
  Receive Date: 20170809
  Receipt Date: 20171006
  Transmission Date: 20180320
  Serious: Yes (Other)
  Sender: FDA-Public Use
  Company Number: US-JNJFOC-20170806971

PATIENT
  Sex: Male
  Weight: 90.72 kg

DRUGS (4)
  1. AZULFIDINE [Concomitant]
     Active Substance: SULFASALAZINE
     Indication: COLITIS ULCERATIVE
     Route: 065
  2. SIMPONI [Suspect]
     Active Substance: GOLIMUMAB
     Indication: COLITIS ULCERATIVE
     Dosage: SEVERAL YEARS AGO
     Route: 058
     Dates: start: 2014, end: 20170808
  3. LEVODOPA/CARBIDOPA [Concomitant]
     Active Substance: CARBIDOPA\LEVODOPA
     Indication: TREMOR
     Route: 065
     Dates: start: 20160103
  4. METAMUCIL [Concomitant]
     Active Substance: PLANTAGO SEED
     Indication: COLITIS ULCERATIVE
     Route: 065

REACTIONS (2)
  - Parkinson^s disease [Not Recovered/Not Resolved]
  - Chronic sinusitis [Unknown]

NARRATIVE: CASE EVENT DATE: 2016
